FAERS Safety Report 4845860-5 (Version None)
Quarter: 2005Q4

REPORT INFORMATION
  Report Type: 
  Country: None (occurrence: None)
  Receive Date: 20051202
  Receipt Date: 20051202
  Transmission Date: 20060501
  Serious: No
  Sender: FDA-Public Use
  Company Number: None

PATIENT
  Age: 43 Year
  Sex: Female
  Weight: 70.3075 kg

DRUGS (1)
  1. LEXAPRO [Suspect]
     Indication: DEPRESSION
     Dosage: 1  10MG TABLET    ONCE A DAY   PO
     Route: 048
     Dates: start: 20051117, end: 20051117

REACTIONS (2)
  - MALAISE [None]
  - NAUSEA [None]
